FAERS Safety Report 7101555-9 (Version None)
Quarter: 2010Q4

REPORT INFORMATION
  Report Type: 
  Country: None (occurrence: None)
  Receive Date: 20101115
  Receipt Date: 20101110
  Transmission Date: 20110411
  Serious: Yes (Other)
  Sender: FDA-Public Use
  Company Number: AU-PFIZER INC-2010145282

PATIENT
  Age: 51 Year
  Sex: Male

DRUGS (1)
  1. DEPO-MEDROL [Suspect]
     Indication: SEASONAL ALLERGY
     Dosage: 40 MG, UNK
     Route: 030

REACTIONS (4)
  - ABASIA [None]
  - GOUT [None]
  - INCORRECT ROUTE OF DRUG ADMINISTRATION [None]
  - TENDONITIS [None]
